FAERS Safety Report 7406951-8 (Version None)
Quarter: 2011Q2

REPORT INFORMATION
  Report Type: 
  Country: None (occurrence: None)
  Receive Date: 20110411
  Receipt Date: 20110405
  Transmission Date: 20111010
  Serious: No
  Sender: FDA-Public Use
  Company Number: US-PFIZER INC-2011054591

PATIENT
  Sex: Male

DRUGS (1)
  1. TOVIAZ [Suspect]
     Dosage: 8 MG, UNK
     Dates: start: 20110310

REACTIONS (3)
  - GENITAL PAIN [None]
  - MICTURITION URGENCY [None]
  - BLADDER PAIN [None]
